FAERS Safety Report 23463695 (Version 2)
Quarter: 2024Q1

REPORT INFORMATION
  Report Type: Spontaneous
  Country: CA (occurrence: CA)
  Receive Date: 20240201
  Receipt Date: 20240212
  Transmission Date: 20240410
  Serious: Yes (Other)
  Sender: FDA-Public Use
  Company Number: CA-PFIZER INC-202400025803

PATIENT
  Age: 82 Year
  Sex: Male

DRUGS (2)
  1. VYNDAMAX [Suspect]
     Active Substance: TAFAMIDIS
     Indication: Cardiac amyloidosis
     Dosage: 61 MG, 1X/DAY FOR 30 DAYS WITH 3 REPEATS
     Route: 048
     Dates: start: 20230404
  2. VYNDAMAX [Suspect]
     Active Substance: TAFAMIDIS
     Dosage: 61 MG, 1X/DAY FOR 30 DAYS WITH 3 REPEATS
     Dates: start: 2024

REACTIONS (3)
  - Cardiac failure chronic [Unknown]
  - Somnolence [Unknown]
  - Fatigue [Unknown]
